FAERS Safety Report 6204810-X (Version None)
Quarter: 2009Q2

REPORT INFORMATION
  Report Type: 
  Country: None (occurrence: None)
  Receive Date: 20090527
  Receipt Date: 20090515
  Transmission Date: 20091009
  Serious: Yes (Hospitalization)
  Sender: FDA-Public Use
  Company Number: JP-GENENTECH-283713

PATIENT
  Sex: Female

DRUGS (2)
  1. HERCEPTIN [Suspect]
     Indication: BREAST CANCER RECURRENT
     Dosage: 2 MG/KG, UNK
     Route: 041
  2. NAVELBINE [Suspect]
     Indication: BREAST CANCER RECURRENT
     Dosage: UNK
     Route: 042

REACTIONS (1)
  - PLATELET COUNT DECREASED [None]
